FAERS Safety Report 23287825 (Version 1)
Quarter: 2023Q4

REPORT INFORMATION
  Report Type: Other
  Country: US (occurrence: None)
  Receive Date: 20231212
  Receipt Date: 20231212
  Transmission Date: 20240109
  Serious: No
  Sender: FDA-Public Use
  Company Number: US-ROCHE-3472421

PATIENT
  Age: 71 Year
  Sex: Female
  Weight: 78.996 kg

DRUGS (1)
  1. OCREVUS [Suspect]
     Active Substance: OCRELIZUMAB
     Indication: Relapsing multiple sclerosis
     Dosage: YES; DATE OF TREATMENT: 19/DEC/2019, 18/JUN/2020, 17/DEC/2020
     Route: 042

REACTIONS (7)
  - COVID-19 [Unknown]
  - T-lymphocyte count decreased [Not Recovered/Not Resolved]
  - Cough [Unknown]
  - Fatigue [Unknown]
  - Sluggishness [Unknown]
  - Malaise [Unknown]
  - Gait disturbance [Not Recovered/Not Resolved]

NARRATIVE: CASE EVENT DATE: 20220101
